FAERS Safety Report 22191545 (Version 6)
Quarter: 2023Q2

REPORT INFORMATION
  Report Type: Spontaneous
  Country: CA (occurrence: CA)
  Receive Date: 20230410
  Receipt Date: 20230531
  Transmission Date: 20230721
  Serious: No
  Sender: FDA-Public Use
  Company Number: CA-PFIZER INC-202300141186

PATIENT
  Age: 50 Year
  Sex: Male

DRUGS (2)
  1. ABRILADA [Suspect]
     Active Substance: ADALIMUMAB-AFZB
     Indication: Hidradenitis
     Dosage: INDUCTION 160MG WEEK 0, 80MG WEEK 2 THEN 40MG STARTING WEEK 4
     Dates: start: 20230126
  2. TRISTAN [Concomitant]
     Dosage: 1 DF

REACTIONS (4)
  - Discharge [Not Recovered/Not Resolved]
  - Diarrhoea [Not Recovered/Not Resolved]
  - Circumstance or information capable of leading to medication error [Unknown]
  - Device mechanical issue [Unknown]

NARRATIVE: CASE EVENT DATE: 20230101
